FAERS Safety Report 6051665-2 (Version None)
Quarter: 2009Q1

REPORT INFORMATION
  Report Type: 
  Country: None (occurrence: None)
  Receive Date: 20090126
  Receipt Date: 20090116
  Transmission Date: 20090719
  Serious: Yes (Hospitalization)
  Sender: FDA-Public Use
  Company Number: PHHO2008FI10141

PATIENT
  Sex: Male
  Weight: 73.5 kg

DRUGS (4)
  1. TASIGNA [Suspect]
     Indication: CHRONIC MYELOID LEUKAEMIA
     Dosage: 400 MG, BID
     Route: 048
     Dates: start: 20080306
  2. PRAVACHOL [Concomitant]
     Dosage: 40 MG
     Dates: start: 20080725, end: 20080911
  3. PRIMASPAN [Concomitant]
  4. ACETYLSALICYLIC ACID SRT [Concomitant]
     Dosage: 100MG
     Dates: start: 20080725, end: 20080911

REACTIONS (4)
  - ARTERIOSCLEROSIS CORONARY ARTERY [None]
  - CHEST PAIN [None]
  - CORONARY ARTERY BYPASS [None]
  - CORONARY ARTERY DISEASE [None]
